FAERS Safety Report 24524053 (Version 1)
Quarter: 2024Q4

REPORT INFORMATION
  Report Type: Spontaneous
  Country: US (occurrence: US)
  Receive Date: 20241018
  Receipt Date: 20241018
  Transmission Date: 20250114
  Serious: No
  Sender: SANOFI AVENTIS
  Company Number: US-SA-2024SA299774

PATIENT
  Sex: Male
  Weight: 99.79 kg

DRUGS (1)
  1. DUPIXENT [Suspect]
     Active Substance: DUPILUMAB
     Indication: Pemphigoid
     Dosage: INJECT 1 SYRINGE UNDER THE SKIN
     Route: 058

REACTIONS (2)
  - Skin irritation [Unknown]
  - Product use in unapproved indication [Unknown]
